FAERS Safety Report 23844180 (Version 1)
Quarter: 2024Q2

REPORT INFORMATION
  Report Type: Spontaneous
  Country: US (occurrence: US)
  Receive Date: 20240510
  Receipt Date: 20240510
  Transmission Date: 20240715
  Serious: No
  Sender: FDA-Public Use
  Company Number: US-BRISTOL-MYERS SQUIBB COMPANY-2024-073361

PATIENT
  Age: 47 Year
  Sex: Female

DRUGS (1)
  1. SOTYKTU [Suspect]
     Active Substance: DEUCRAVACITINIB
     Indication: Rheumatoid arthritis
     Route: 048
     Dates: start: 202404

REACTIONS (2)
  - Off label use [Unknown]
  - Upper respiratory tract infection [Unknown]
